FAERS Safety Report 9306177 (Version 2)
Quarter: 2013Q2

REPORT INFORMATION
  Report Type: Spontaneous
  Country: FR (occurrence: None)
  Receive Date: 20130508
  Receipt Date: 20130612
  Transmission Date: 20140414
  Serious: Yes (Hospitalization)
  Sender: FDA-Public Use
  Company Number: 2013035800

PATIENT
  Age: 12 Year
  Sex: Female

DRUGS (2)
  1. PRIVIGEN [Suspect]
     Indication: GUILLAIN-BARRE SYNDROME
     Dosage: 1 G/KG/D SO 75 G/D, TOTAL DOSE:   (NOT OTHERWISE SPECIFIED)
     Route: 042
     Dates: start: 20130327, end: 20130328
  2. SOLU MEDROL(METHYLPREDNISOLONE SODIUM SUCCINATE) [Concomitant]

REACTIONS (1)
  - Haemolytic anaemia [None]
